FAERS Safety Report 15439480 (Version 1)
Quarter: 2018Q3

REPORT INFORMATION
  Report Type: Spontaneous
  Country: US (occurrence: US)
  Receive Date: 20180928
  Receipt Date: 20180928
  Transmission Date: 20181010
  Serious: Yes (Other)
  Sender: FDA-Public Use
  Company Number: US-BAUSCH-BL-2018-026168

PATIENT
  Age: 44 Year
  Sex: Female

DRUGS (3)
  1. GLUMETZA [Suspect]
     Active Substance: METFORMIN HYDROCHLORIDE
     Indication: POLYCYSTIC OVARIES
     Dosage: ^BLUE TABLETS^ 1 TABLET BY MOUTH ONCE DAILY AT NIGHT
     Route: 048
     Dates: start: 2004
  2. GLUMETZA [Suspect]
     Active Substance: METFORMIN HYDROCHLORIDE
     Indication: PRODUCT USE IN UNAPPROVED INDICATION
     Dosage: WHITE TABLETS OF GLUMETZA 500 MG
     Route: 048
     Dates: start: 20180918
  3. GLUMETZA [Suspect]
     Active Substance: METFORMIN HYDROCHLORIDE
     Dosage: PATIENT TOOK A BLUE TABLET OF GLUMETZA THAT SHE HAD FROM AN OLD SUPPLY
     Route: 048
     Dates: start: 20180919

REACTIONS (4)
  - Condition aggravated [Recovering/Resolving]
  - Product substitution issue [Not Recovered/Not Resolved]
  - Product use in unapproved indication [Not Recovered/Not Resolved]
  - Cystitis interstitial [Recovering/Resolving]

NARRATIVE: CASE EVENT DATE: 2004
